FAERS Safety Report 8441611 (Version 2)
Quarter: 2016Q4

REPORT INFORMATION
  Report Type: Spontaneous
  Country: US (occurrence: US)
  Receive Date: 20120305
  Receipt Date: 20161220
  Transmission Date: 20170207
  Serious: Yes (Other)
  Sender: FDA-Public Use
  Company Number: US-ROCHE-1032440

PATIENT
  Sex: Male

DRUGS (1)
  1. ZELBORAF [Suspect]
     Active Substance: VEMURAFENIB
     Indication: PRODUCT USED FOR UNKNOWN INDICATION
     Route: 065

REACTIONS (9)
  - Alopecia [Unknown]
  - Furuncle [Unknown]
  - Dizziness [Unknown]
  - Vomiting [Unknown]
  - Rash [Unknown]
  - Decreased appetite [Unknown]
  - Chills [Unknown]
  - Nausea [Unknown]
  - Headache [Unknown]
